FAERS Safety Report 6544390-2 (Version None)
Quarter: 2010Q1

REPORT INFORMATION
  Report Type: 
  Country: None (occurrence: None)
  Receive Date: 20100121
  Receipt Date: 20100113
  Transmission Date: 20100710
  Serious: Yes (Hospitalization)
  Sender: FDA-Public Use
  Company Number: US-BIOGENIDEC-2010BI000301

PATIENT
  Age: 43 Year
  Sex: Female
  Weight: 79 kg

DRUGS (2)
  1. TYSABRI [Suspect]
     Indication: MULTIPLE SCLEROSIS
     Route: 042
     Dates: start: 20070801
  2. BIRTH CONTROL PILLS (NOS) [Concomitant]

REACTIONS (3)
  - CHEST PAIN [None]
  - PULMONARY EMBOLISM [None]
  - THROMBOSIS [None]
